FAERS Safety Report 10501920 (Version 2)
Quarter: 2014Q4

REPORT INFORMATION
  Report Type: Spontaneous
  Country: MX (occurrence: MX)
  Receive Date: 20141007
  Receipt Date: 20141007
  Transmission Date: 20150528
  Serious: Yes (Other)
  Sender: FDA-Public Use
  Company Number: MX-PFIZER INC-2014259729

PATIENT
  Age: 53 Year
  Sex: Female

DRUGS (1)
  1. EPAMIN [Suspect]
     Active Substance: PHENYTOIN SODIUM

REACTIONS (4)
  - Seizure [Unknown]
  - Feeling abnormal [Unknown]
  - Fatigue [Unknown]
  - Daydreaming [Unknown]
